FAERS Safety Report 9373178 (Version 2)
Quarter: 2013Q3

REPORT INFORMATION
  Report Type: Report from Study
  Country: US (occurrence: US)
  Receive Date: 20130627
  Receipt Date: 20130816
  Transmission Date: 20140515
  Serious: Yes (Other)
  Sender: FDA-Public Use
  Company Number: US-US-EMD SERONO, INC.-7219877

PATIENT
  Age: 49 Year
  Sex: Female

DRUGS (6)
  1. REBIF [Suspect]
     Indication: MULTIPLE SCLEROSIS
     Route: 058
     Dates: start: 20111004
  2. LYRICA [Concomitant]
     Indication: FIBROMYALGIA
     Route: 048
  3. TIZANIDINE [Concomitant]
     Indication: MUSCLE SPASMS
     Route: 048
  4. TIZANIDINE [Concomitant]
     Route: 048
  5. TRAMADOL [Concomitant]
     Indication: FIBROMYALGIA
     Route: 048
  6. HYDROCODONE [Concomitant]
     Indication: PRODUCT USED FOR UNKNOWN INDICATION

REACTIONS (7)
  - Diabetic nephropathy [Unknown]
  - Nerve injury [Unknown]
  - Flushing [Recovered/Resolved]
  - Urticaria [Not Recovered/Not Resolved]
  - Pyrexia [Recovered/Resolved]
  - Injection site erythema [Not Recovered/Not Resolved]
  - Injection site pain [Not Recovered/Not Resolved]
